FAERS Safety Report 25499177 (Version 2)
Quarter: 2025Q3

REPORT INFORMATION
  Report Type: Spontaneous
  Country: EU (occurrence: EU)
  Receive Date: 20250701
  Receipt Date: 20250714
  Transmission Date: 20251020
  Serious: Yes (Disabling)
  Sender: SANDOZ
  Company Number: EU-ROCHE-10000309762

PATIENT

DRUGS (13)
  1. BEVACIZUMAB [Suspect]
     Active Substance: BEVACIZUMAB
     Dosage: 243 MG, Q2W, DATE OF MOST RECENT DOSE OF CANCER TREATMENT PRIOR TO AE/SAE ONSET 06-NOV-2024
     Route: 042
     Dates: start: 20240820
  2. BEVACIZUMAB [Suspect]
     Active Substance: BEVACIZUMAB
     Dosage: UNK UNK, Q2W, DATE OF MOST RECENT DOSE OF CANCER TREATMENT PRIOR TO AE/SAE ONSET 06-NOV-2024
     Route: 042
     Dates: start: 20250219
  3. BEVACIZUMAB [Suspect]
     Active Substance: BEVACIZUMAB
     Indication: Neoplasm malignant
     Route: 065
     Dates: start: 20250219
  4. LEUCOVORIN CALCIUM [Suspect]
     Active Substance: LEUCOVORIN CALCIUM
     Indication: Neoplasm malignant
     Dosage: 592 MG, Q2W, DATE OF MOST RECENT DOSE OF CANCER TREATMENT PRIOR TO AE/SAE ONSET 06-NOV-2024
     Route: 042
     Dates: start: 20240820
  5. LEUCOVORIN CALCIUM [Suspect]
     Active Substance: LEUCOVORIN CALCIUM
     Route: 065
     Dates: start: 20240723
  6. FLUOROURACIL [Suspect]
     Active Substance: FLUOROURACIL
     Dosage: 3552 MG, Q2W, DATE OF MOST RECENT DOSE OF CANCER TREATMENT PRIOR TO AE/SAE ONSET 06-NOV-2024
     Route: 042
     Dates: start: 20240820
  7. FLUOROURACIL [Suspect]
     Active Substance: FLUOROURACIL
     Indication: Neoplasm malignant
     Dosage: 592 MG, Q2W, DATE OF MOST RECENT DOSE OF CANCER TREATMENT PRIOR TO AE/SAE ONSET 06-NOV-2024
     Route: 042
     Dates: start: 20240820
  8. FLUOROURACIL [Suspect]
     Active Substance: FLUOROURACIL
     Route: 065
     Dates: start: 20240723
  9. FLUOROURACIL [Suspect]
     Active Substance: FLUOROURACIL
     Route: 065
     Dates: start: 20241204
  10. OXALIPLATIN [Suspect]
     Active Substance: OXALIPLATIN
     Indication: Neoplasm malignant
     Dosage: 126 MG, Q2W, DATE OF MOST RECENT DOSE OF CANCER TREATMENT PRIOR TO AE/SAE ONSET 06-NOV-2024
     Route: 042
     Dates: start: 20240820
  11. OXALIPLATIN [Suspect]
     Active Substance: OXALIPLATIN
     Route: 065
     Dates: start: 20240723
  12. OXALIPLATIN [Suspect]
     Active Substance: OXALIPLATIN
     Route: 065
     Dates: start: 20241204
  13. CAPECITABINE [Concomitant]
     Active Substance: CAPECITABINE
     Indication: Product used for unknown indication
     Route: 065
     Dates: start: 20250212

REACTIONS (1)
  - Polyneuropathy [Recovered/Resolved]

NARRATIVE: CASE EVENT DATE: 20241120
